FAERS Safety Report 9887468 (Version 1)
Quarter: 2014Q1

REPORT INFORMATION
  Report Type: Spontaneous
  Country: US (occurrence: US)
  Receive Date: 20140211
  Receipt Date: 20140211
  Transmission Date: 20141002
  Serious: No
  Sender: FDA-Public Use
  Company Number: US-B.I. PHARMACEUTICALS,INC./RIDGEFIELD-2014-BI-05207BP

PATIENT
  Age: 20 Month
  Sex: Male
  Weight: 14 kg

DRUGS (1)
  1. ZANTAC 75 (RANITIDINE HYDROCHLORIDE) [Suspect]
     Indication: DYSPEPSIA
     Dosage: 150 MG
     Route: 048
     Dates: start: 20130204, end: 20130204

REACTIONS (2)
  - Accidental exposure to product [Recovered/Resolved]
  - Vomiting [Recovered/Resolved]
